FAERS Safety Report 9226888 (Version 1)
Quarter: 2013Q2

REPORT INFORMATION
  Report Type: Spontaneous
  Country: US (occurrence: US)
  Receive Date: 20130412
  Receipt Date: 20130412
  Transmission Date: 20140414
  Serious: Yes (Other)
  Sender: FDA-Public Use
  Company Number: US-JNJFOC-20130400840

PATIENT
  Sex: Male
  Weight: 81.65 kg

DRUGS (5)
  1. INVEGA SUSTENNA [Suspect]
     Indication: SCHIZOPHRENIA
     Route: 030
  2. INVEGA SUSTENNA [Suspect]
     Indication: SCHIZOPHRENIA
     Route: 030
  3. RISPERDAL CONSTA [Suspect]
     Indication: SCHIZOPHRENIA
     Route: 030
  4. LITHIUM CARBONATE [Concomitant]
     Indication: ANXIETY
     Route: 048
  5. EFFEXOR [Concomitant]
     Indication: DEPRESSION
     Route: 048

REACTIONS (1)
  - Hallucination, auditory [Not Recovered/Not Resolved]
